FAERS Safety Report 11179559 (Version 2)
Quarter: 2017Q2

REPORT INFORMATION
  Report Type: Report from Study
  Country: US (occurrence: US)
  Receive Date: 20150611
  Receipt Date: 20170525
  Transmission Date: 20170829
  Serious: Yes (Death, Life-Threatening, Hospitalization, Disabling)
  Sender: FDA-Public Use
  Company Number: PHHO2015US009818

PATIENT
  Age: 86 Year
  Sex: Male
  Weight: 91.4 kg

DRUGS (16)
  1. ADALAT CC [Concomitant]
     Active Substance: NIFEDIPINE
     Indication: HYPERTENSION
     Dosage: 60 MG, BID
     Route: 048
     Dates: start: 20150525
  2. LABETALOL [Concomitant]
     Active Substance: LABETALOL\LABETALOL HYDROCHLORIDE
     Indication: HYPERTENSION
     Dosage: 10 MG, DAILY
     Route: 042
     Dates: start: 20150525
  3. TYLENOL [Concomitant]
     Active Substance: ACETAMINOPHEN
     Indication: PAIN
     Dosage: 650 MG, BID
     Route: 048
     Dates: start: 20150525
  4. PLACEBO [Suspect]
     Active Substance: UNSPECIFIED INGREDIENT
     Indication: CARDIAC FAILURE ACUTE
     Dosage: UNK
     Route: 042
     Dates: start: 20150522, end: 20150524
  5. MIRALAX [Concomitant]
     Active Substance: POLYETHYLENE GLYCOL 3350
     Indication: PROPHYLAXIS
     Dosage: 17 G, DAILY
     Route: 048
     Dates: start: 20150524
  6. CARDURA [Concomitant]
     Active Substance: DOXAZOSIN MESYLATE
     Indication: PROPHYLAXIS
     Dosage: 4 MG, DAILY
     Route: 048
     Dates: start: 2013
  7. NICARDIPINE [Concomitant]
     Active Substance: NICARDIPINE
     Indication: HYPERTENSION
     Dosage: 20 MG/ 200 ML ADJUSTED PRN
     Route: 042
     Dates: start: 20150522
  8. COREG [Concomitant]
     Active Substance: CARVEDILOL
     Indication: HYPERTENSION
     Dosage: 50 MG, BID
     Route: 048
  9. ZESTRIL [Concomitant]
     Active Substance: LISINOPRIL
     Indication: HYPERTENSION
     Dosage: 10 MG, DAILY
     Route: 048
  10. COLACE [Concomitant]
     Active Substance: DOCUSATE SODIUM
     Indication: PROPHYLAXIS
     Dosage: 100 MG, DAILY
     Route: 048
     Dates: start: 20150522
  11. PORCINE [Concomitant]
     Indication: CARDIOVASCULAR EVENT PROPHYLAXIS
     Dosage: 5000 U, TID
     Route: 042
     Dates: start: 20150522
  12. CARDIOLITE [Concomitant]
     Active Substance: TECHNETIUM TC-99M SESTAMIBI
     Indication: CARDIAC STRESS TEST
     Dosage: 15.3 MCI, 15.1 MCI, 46.1 MCI X 3
     Route: 042
     Dates: start: 20150526
  13. FUROSEMIDE. [Suspect]
     Active Substance: FUROSEMIDE
     Indication: POLYURIA
     Dosage: 40-120 MG, PRN, ADJUESTED BASED ON FLUID OUTPUT
     Route: 042
     Dates: start: 20150522
  14. HUMALOG [Concomitant]
     Active Substance: INSULIN LISPRO
     Indication: DIABETES MELLITUS
     Dosage: PRN BASED ON BLOOD GLUCOSE
     Route: 065
     Dates: start: 20150523
  15. PRINIVIL [Concomitant]
     Active Substance: LISINOPRIL
     Indication: HYPERTENSION
     Dosage: 10 MG, DAILY
     Route: 048
  16. ULTRAM [Concomitant]
     Active Substance: TRAMADOL HYDROCHLORIDE
     Indication: PAIN
     Dosage: 50 MG, BID
     Route: 048
     Dates: start: 20150526

REACTIONS (5)
  - Staphylococcal sepsis [Fatal]
  - Small intestinal obstruction [Fatal]
  - Acute myocardial infarction [Fatal]
  - Atrial fibrillation [Not Recovered/Not Resolved]
  - Renal failure [Fatal]

NARRATIVE: CASE EVENT DATE: 20150524
